FAERS Safety Report 17007528 (Version 3)
Quarter: 2019Q4

REPORT INFORMATION
  Report Type: Report from Study
  Country: US (occurrence: US)
  Receive Date: 20191108
  Receipt Date: 20191129
  Transmission Date: 20200122
  Serious: No
  Sender: FDA-Public Use
  Company Number: US-BRISTOL-MYERS SQUIBB COMPANY-BMS-2019-104919

PATIENT
  Age: 65 Year
  Sex: Female
  Weight: 38.73 kg

DRUGS (8)
  1. LACTOBACILLUS ACIDOPHILUS [Concomitant]
     Active Substance: LACTOBACILLUS ACIDOPHILUS
     Indication: ROUTINE HEALTH MAINTENANCE
     Dosage: UNK UNK, QD
     Route: 048
     Dates: start: 201511
  2. NIVOLUMAB [Suspect]
     Active Substance: NIVOLUMAB
     Indication: LUNG NEOPLASM MALIGNANT
     Route: 065
  3. SALINE NASAL MIST [Concomitant]
     Indication: SINUSITIS
     Dosage: 0.65 % (W/V)
     Route: 065
     Dates: start: 20171226
  4. XANAX [Concomitant]
     Active Substance: ALPRAZOLAM
     Indication: ANXIETY
     Dosage: 0.25 MILLIGRAM
     Route: 048
     Dates: start: 201706
  5. NIVOLUMAB [Suspect]
     Active Substance: NIVOLUMAB
     Indication: MALIGNANT MELANOMA
     Dosage: 240 MILLIGRAM, Q2WK
     Route: 065
     Dates: start: 20170711
  6. MUCINEX [Concomitant]
     Active Substance: GUAIFENESIN
     Indication: SINUSITIS
     Dosage: 600 MILLIGRAM
     Route: 048
     Dates: start: 20171226
  7. ASPIRINE [Concomitant]
     Active Substance: ASPIRIN
     Indication: THROMBOCYTOSIS
     Dosage: 8 MILLIGRAM, QD
     Route: 048
     Dates: start: 20180320
  8. CLARITIN [Concomitant]
     Active Substance: LORATADINE
     Indication: SINUSITIS
     Dosage: 10 MILLIGRAM
     Route: 048
     Dates: start: 20181120

REACTIONS (2)
  - Hypoalbuminaemia [Not Recovered/Not Resolved]
  - Anaemia [Unknown]

NARRATIVE: CASE EVENT DATE: 20190917
